FAERS Safety Report 14817451 (Version 4)
Quarter: 2018Q2

REPORT INFORMATION
  Report Type: Report from Study
  Country: JP (occurrence: JP)
  Receive Date: 20180426
  Receipt Date: 20180622
  Transmission Date: 20180711
  Serious: Yes (Death, Disabling)
  Sender: FDA-Public Use
  Company Number: JP-BEH-2018090121

PATIENT
  Age: 84 Year
  Sex: Male
  Weight: 38 kg

DRUGS (5)
  1. WARFARIN [Concomitant]
     Active Substance: WARFARIN
     Indication: POSTOPERATIVE CARE
     Dosage: 2.5 MG, UNK
     Route: 048
     Dates: start: 19991111, end: 20171118
  2. WARFARIN [Concomitant]
     Active Substance: WARFARIN
     Indication: ATRIAL FIBRILLATION
  3. BERIPLEX P/N [Suspect]
     Active Substance: COAGULATION FACTOR IX HUMAN\COAGULATION FACTOR VII HUMAN\COAGULATION FACTOR X HUMAN\PROTEIN C\PROTEIN S HUMAN\PROTHROMBIN
     Indication: HAEMORRHAGE
     Dosage: 2000 IU, UNK
     Route: 042
     Dates: start: 20171119
  4. BERIPLEX P/N [Suspect]
     Active Substance: COAGULATION FACTOR IX HUMAN\COAGULATION FACTOR VII HUMAN\COAGULATION FACTOR X HUMAN\PROTEIN C\PROTEIN S HUMAN\PROTHROMBIN
     Indication: SURGERY
  5. KAYTWO N [Concomitant]
     Active Substance: MENATETRENONE
     Indication: PROCOAGULANT THERAPY
     Dosage: 10 MG, OD
     Route: 065
     Dates: start: 20171119, end: 20171119

REACTIONS (5)
  - Vascular insufficiency [Fatal]
  - Peripheral arterial occlusive disease [Fatal]
  - Pneumonia fungal [Fatal]
  - Extremity necrosis [Fatal]
  - Fungal sepsis [Fatal]

NARRATIVE: CASE EVENT DATE: 20171201
